FAERS Safety Report 14034085 (Version 3)
Quarter: 2017Q4

REPORT INFORMATION
  Report Type: Report from Study
  Country: US (occurrence: US)
  Receive Date: 20171003
  Receipt Date: 20171021
  Transmission Date: 20180321
  Serious: Yes (Hospitalization)
  Sender: FDA-Public Use
  Company Number: US-TESARO, INC-US-2017TSO01853

PATIENT

DRUGS (13)
  1. AMLODIPINE BESYLATE AND VALSARTAN [Concomitant]
     Active Substance: AMLODIPINE BESYLATE\VALSARTAN
     Indication: PRODUCT USED FOR UNKNOWN INDICATION
     Dosage: 10 MG, QD
     Route: 048
     Dates: start: 20170711
  2. ALEVE [Concomitant]
     Active Substance: NAPROXEN SODIUM
     Indication: PRODUCT USED FOR UNKNOWN INDICATION
     Dosage: UNK
  3. ZEJULA [Suspect]
     Active Substance: NIRAPARIB
     Indication: OVARIAN CANCER
     Dosage: 300 MG, QD
     Route: 048
     Dates: start: 20170712, end: 20170904
  4. ZEJULA [Suspect]
     Active Substance: NIRAPARIB
     Dosage: 200 MG,QD
     Route: 048
     Dates: start: 20171010
  5. PROCHLORPERAZINE MALEATE. [Concomitant]
     Active Substance: PROCHLORPERAZINE MALEATE
     Indication: PRODUCT USED FOR UNKNOWN INDICATION
     Dosage: 10 MG, UNK
     Route: 048
     Dates: start: 20170712
  6. MIRALAX [Concomitant]
     Active Substance: POLYETHYLENE GLYCOL 3350
     Indication: PRODUCT USED FOR UNKNOWN INDICATION
     Dosage: UNK, PRN
     Route: 048
     Dates: start: 20170807
  7. OMEPRAZOLE. [Concomitant]
     Active Substance: OMEPRAZOLE
     Indication: PRODUCT USED FOR UNKNOWN INDICATION
     Dosage: 20 MG, QD
     Route: 048
     Dates: start: 20170711
  8. ASPRIN [Concomitant]
     Active Substance: ASPIRIN
     Indication: PRODUCT USED FOR UNKNOWN INDICATION
     Dosage: 81 MG, UNK
     Route: 048
     Dates: start: 20170711
  9. CRESTOR [Concomitant]
     Active Substance: ROSUVASTATIN CALCIUM
     Indication: PRODUCT USED FOR UNKNOWN INDICATION
     Dosage: UNK
  10. ZEJULA [Suspect]
     Active Substance: NIRAPARIB
     Dosage: 300 MG, QD
     Route: 048
  11. GABAPENTIN. [Concomitant]
     Active Substance: GABAPENTIN
     Indication: PAIN IN EXTREMITY
     Dosage: 300 MG, PRN
     Route: 048
  12. HYDROCODONE/ACETAMINOPHEN [Concomitant]
     Active Substance: ACETAMINOPHEN\HYDROCODONE
     Indication: PRODUCT USED FOR UNKNOWN INDICATION
     Dosage: UNK
     Route: 048
     Dates: start: 20170712
  13. BENAZEPRIL HCL [Concomitant]
     Active Substance: BENAZEPRIL HYDROCHLORIDE
     Indication: PRODUCT USED FOR UNKNOWN INDICATION
     Dosage: 10 MG, QD
     Route: 048
     Dates: start: 20170711

REACTIONS (14)
  - Malaise [Unknown]
  - Pneumonia [Recovered/Resolved]
  - Nausea [Recovered/Resolved]
  - Ill-defined disorder [Unknown]
  - Pain in extremity [Recovered/Resolved]
  - Insomnia [Not Recovered/Not Resolved]
  - Blood count abnormal [Recovered/Resolved]
  - Poor quality sleep [Recovered/Resolved]
  - Hypertension [Not Recovered/Not Resolved]
  - Malaise [Recovered/Resolved]
  - Vomiting [Unknown]
  - Constipation [Unknown]
  - Herpes zoster [Recovered/Resolved]
  - Rectal discharge [Unknown]

NARRATIVE: CASE EVENT DATE: 201707
